FAERS Safety Report 25813311 (Version 1)
Quarter: 2025Q3

REPORT INFORMATION
  Report Type: Spontaneous
  Country: US (occurrence: US)
  Receive Date: 20250917
  Receipt Date: 20250917
  Transmission Date: 20251021
  Serious: Yes (Hospitalization, Other)
  Sender: STRIDES
  Company Number: US-STRIDES PHARMA UK LTD.-2025SP011739

PATIENT
  Age: 9 Year
  Sex: Male

DRUGS (22)
  1. PREDNISOLONE [Suspect]
     Active Substance: PREDNISOLONE
     Indication: Paediatric acute-onset neuropsychiatric syndrome
     Route: 065
  2. SERTRALINE [Suspect]
     Active Substance: SERTRALINE HYDROCHLORIDE
     Indication: Obsessive-compulsive disorder
     Route: 065
     Dates: start: 202205
  3. OLANZAPINE [Suspect]
     Active Substance: OLANZAPINE
     Indication: Obsessive-compulsive disorder
     Route: 065
     Dates: start: 202206
  4. OLANZAPINE [Suspect]
     Active Substance: OLANZAPINE
     Route: 065
     Dates: start: 202210
  5. METHYLPHENIDATE [Suspect]
     Active Substance: METHYLPHENIDATE
     Indication: Attention deficit hyperactivity disorder
     Route: 065
     Dates: start: 202306
  6. AZITHROMYCIN [Suspect]
     Active Substance: AZITHROMYCIN
     Indication: Paediatric acute-onset neuropsychiatric syndrome
     Route: 065
     Dates: start: 202208
  7. CLONIDINE [Suspect]
     Active Substance: CLONIDINE
     Indication: Obsessive-compulsive disorder
     Route: 065
     Dates: start: 202205
  8. FLUVOXAMINE [Suspect]
     Active Substance: FLUVOXAMINE
     Indication: Obsessive-compulsive disorder
     Route: 065
     Dates: start: 202206
  9. FLUVOXAMINE [Suspect]
     Active Substance: FLUVOXAMINE
     Route: 065
     Dates: start: 2022
  10. CLOMIPRAMINE [Suspect]
     Active Substance: CLOMIPRAMINE
     Indication: Obsessive-compulsive disorder
     Route: 065
     Dates: start: 202206
  11. ARIPIPRAZOLE [Suspect]
     Active Substance: ARIPIPRAZOLE
     Indication: Mood swings
     Route: 065
     Dates: start: 202208, end: 202209
  12. LAMOTRIGINE [Suspect]
     Active Substance: LAMOTRIGINE
     Indication: Mood swings
     Route: 065
     Dates: start: 202208
  13. LAMOTRIGINE [Suspect]
     Active Substance: LAMOTRIGINE
     Route: 065
  14. IMMUNE GLOBULIN NOS [Suspect]
     Active Substance: IMMUNE GLOBULIN NOS
     Indication: Paediatric acute-onset neuropsychiatric syndrome
     Route: 042
     Dates: start: 202207
  15. VILOXAZINE [Suspect]
     Active Substance: VILOXAZINE
     Indication: Attention deficit hyperactivity disorder
     Route: 065
     Dates: start: 202306
  16. CLINDAMYCIN [Concomitant]
     Active Substance: CLINDAMYCIN
     Indication: Paediatric acute-onset neuropsychiatric syndrome
     Route: 065
     Dates: start: 202209
  17. LURASIDONE [Concomitant]
     Active Substance: LURASIDONE
     Indication: Obsessive-compulsive disorder
     Route: 065
     Dates: start: 202209
  18. KETAMINE [Concomitant]
     Active Substance: KETAMINE
     Indication: Obsessive-compulsive disorder
     Route: 065
     Dates: start: 202207
  19. AMOXICILLIN [Concomitant]
     Active Substance: AMOXICILLIN
     Indication: Streptococcal infection
     Route: 065
     Dates: start: 202205
  20. IBUPROFEN [Concomitant]
     Active Substance: IBUPROFEN
     Indication: Product used for unknown indication
     Route: 065
     Dates: start: 202208
  21. LORAZEPAM [Concomitant]
     Active Substance: LORAZEPAM
     Indication: Sedative therapy
     Route: 065
     Dates: start: 202210
  22. CEFDINIR [Concomitant]
     Active Substance: CEFDINIR
     Indication: Product used for unknown indication
     Route: 065

REACTIONS (4)
  - Condition aggravated [Unknown]
  - Drug ineffective [Unknown]
  - Drug ineffective for unapproved indication [Unknown]
  - Off label use [Unknown]

NARRATIVE: CASE EVENT DATE: 20231101
